FAERS Safety Report 20906512 (Version 1)
Quarter: 2022Q2

REPORT INFORMATION
  Report Type: Other
  Country: US (occurrence: None)
  Receive Date: 20220602
  Receipt Date: 20220602
  Transmission Date: 20220721
  Serious: Yes (Hospitalization)
  Sender: FDA-Public Use
  Company Number: US-ROCHE-3105608

PATIENT
  Sex: Female
  Weight: 113 kg

DRUGS (1)
  1. XOLAIR [Suspect]
     Active Substance: OMALIZUMAB
     Indication: Idiopathic urticaria
     Dosage: PATIENT GETS 2, 150MG INJECTIONS FOR A TOTAL OF 300MG ;ONGOING: YES
     Route: 058
     Dates: start: 202107

REACTIONS (5)
  - Anaphylactic reaction [Unknown]
  - Rash [Unknown]
  - Urticaria [Unknown]
  - Nausea [Unknown]
  - Cough [Unknown]
